FAERS Safety Report 14524077 (Version 1)
Quarter: 2018Q1

REPORT INFORMATION
  Report Type: Spontaneous
  Country: DE (occurrence: DE)
  Receive Date: 20180213
  Receipt Date: 20180213
  Transmission Date: 20180509
  Serious: Yes (Hospitalization)
  Sender: FDA-Public Use
  Company Number: DE-SUN PHARMACEUTICAL INDUSTRIES LTD-2018RR-159618

PATIENT
  Age: 79 Year
  Sex: Female

DRUGS (8)
  1. L-THYROXINE [Concomitant]
     Active Substance: LEVOTHYROXINE
     Indication: PRODUCT USED FOR UNKNOWN INDICATION
     Route: 065
  2. LISINOPRIL. [Concomitant]
     Active Substance: LISINOPRIL
     Indication: PRODUCT USED FOR UNKNOWN INDICATION
     Route: 065
  3. AMILORIDHYDROCHLORID/HCT [Concomitant]
     Indication: PRODUCT USED FOR UNKNOWN INDICATION
     Route: 065
  4. INSULINE [Concomitant]
     Active Substance: INSULIN NOS
     Indication: PRODUCT USED FOR UNKNOWN INDICATION
     Route: 065
  5. PROPRANOLOL [Concomitant]
     Active Substance: PROPRANOLOL HYDROCHLORIDE
     Indication: PRODUCT USED FOR UNKNOWN INDICATION
     Route: 065
  6. HYDROTALCIT [Concomitant]
     Indication: PRODUCT USED FOR UNKNOWN INDICATION
     Route: 065
  7. CLARITHROMYCIN BASICS 500MG FILMTABLETTEN [Suspect]
     Active Substance: CLARITHROMYCIN
     Indication: NASOPHARYNGITIS
     Dosage: UNK
     Route: 065
     Dates: start: 20180108
  8. HOWTHORN [Concomitant]
     Indication: PRODUCT USED FOR UNKNOWN INDICATION
     Route: 065

REACTIONS (17)
  - Swelling face [Unknown]
  - Peripheral coldness [Unknown]
  - Night sweats [Unknown]
  - Erythema [Unknown]
  - Dry mouth [Unknown]
  - Hypoaesthesia [Unknown]
  - Dyspnoea [Unknown]
  - Hypertension [Unknown]
  - Asthenia [Unknown]
  - Chest discomfort [Unknown]
  - Arrhythmia [Unknown]
  - Tremor [Unknown]
  - Constipation [Unknown]
  - Pruritus [Unknown]
  - Agitation [Unknown]
  - Visual impairment [Unknown]
  - Communication disorder [Unknown]

NARRATIVE: CASE EVENT DATE: 20180113
